FAERS Safety Report 23597621 (Version 1)
Quarter: 2024Q1

REPORT INFORMATION
  Report Type: Spontaneous
  Country: US (occurrence: None)
  Receive Date: 20240305
  Receipt Date: 20240305
  Transmission Date: 20240410
  Serious: Yes (Life-Threatening, Disabling, Other)
  Sender: FDA-Public Use
  Company Number: None

PATIENT
  Age: 43 Year
  Sex: Female
  Weight: 56.25 kg

DRUGS (6)
  1. TESTOSTERONE [Suspect]
     Active Substance: TESTOSTERONE
     Indication: Accidental exposure to product
  2. RISPERIDONE [Concomitant]
     Active Substance: RISPERIDONE
  3. UNSPECIFIED INGREDIENT [Concomitant]
     Active Substance: UNSPECIFIED INGREDIENT
  4. hydroaxazine [Concomitant]
  5. ADVIL [Concomitant]
     Active Substance: IBUPROFEN
  6. TYLENOL [Concomitant]
     Active Substance: ACETAMINOPHEN

REACTIONS (6)
  - Brain oedema [None]
  - Bone density abnormal [None]
  - Visual impairment [None]
  - Ear disorder [None]
  - Weight decreased [None]
  - Thinking abnormal [None]

NARRATIVE: CASE EVENT DATE: 20240304
